FAERS Safety Report 8814195 (Version 1)
Quarter: 2012Q4

REPORT INFORMATION
  Report Type: Spontaneous
  Country: US (occurrence: None)
  Receive Date: 20120926
  Receipt Date: 20120926
  Transmission Date: 20130627
  Serious: Yes (Life-Threatening, Hospitalization)
  Sender: FDA-Public Use
  Company Number: None

PATIENT
  Age: 61 Year
  Sex: Female
  Weight: 61.24 kg

DRUGS (1)
  1. ALLI [Suspect]
     Indication: WEIGHT CONTROL
     Dosage: one or two pills before each meal
     Dates: start: 20080217, end: 20080617

REACTIONS (2)
  - Cardiac arrest [None]
  - Stress cardiomyopathy [None]
